FAERS Safety Report 25066126 (Version 1)
Quarter: 2025Q1

REPORT INFORMATION
  Report Type: Spontaneous
  Country: JP (occurrence: JP)
  Receive Date: 20250312
  Receipt Date: 20250312
  Transmission Date: 20250409
  Serious: Yes (Hospitalization)
  Sender: BOEHRINGER INGELHEIM
  Company Number: JP-BoehringerIngelheim-2025-BI-014376

PATIENT
  Age: 35 Year
  Sex: Male
  Weight: 80.00 kg

DRUGS (9)
  1. JARDIANCE [Suspect]
     Active Substance: EMPAGLIFLOZIN
     Indication: Type 2 diabetes mellitus
  2. TELMISARTAN [Suspect]
     Active Substance: TELMISARTAN
     Indication: Hypertension
  3. TELMISARTAN [Suspect]
     Active Substance: TELMISARTAN
     Indication: Nephropathy
  4. MOUNJARO [Suspect]
     Active Substance: TIRZEPATIDE
     Indication: Type 2 diabetes mellitus
     Dates: start: 20241106, end: 20241125
  5. FINERENONE [Suspect]
     Active Substance: FINERENONE
     Indication: Hypertension
  6. FINERENONE [Suspect]
     Active Substance: FINERENONE
     Indication: Nephropathy
  7. METGLUCO [Concomitant]
     Active Substance: METFORMIN HYDROCHLORIDE
     Indication: Product used for unknown indication
  8. ROSUVASTATIN OD (ROSUVASTATIN CALCIUM) [Concomitant]
     Indication: Product used for unknown indication
  9. CILOSTAZOL OD (CILOSTAZOL) [Concomitant]
     Indication: Product used for unknown indication

REACTIONS (5)
  - Acute kidney injury [Recovered/Resolved]
  - Nausea [Unknown]
  - Diarrhoea [Unknown]
  - Dehydration [Unknown]
  - Dizziness [Unknown]

NARRATIVE: CASE EVENT DATE: 20241124
